FAERS Safety Report 9275311 (Version 1)
Quarter: 2013Q2

REPORT INFORMATION
  Report Type: Report from Study
  Country: DE (occurrence: DE)
  Receive Date: 20130507
  Receipt Date: 20130507
  Transmission Date: 20140414
  Serious: Yes (Death)
  Sender: FDA-Public Use
  Company Number: DE-ROCHE-GNE264097

PATIENT
  Age: 74 Year
  Sex: Male

DRUGS (1)
  1. ALTEPLASE [Suspect]
     Indication: CEREBRAL ARTERY OCCLUSION
     Dosage: 0.9 MG/KG, UNK
     Route: 042

REACTIONS (2)
  - Haemorrhage intracranial [Fatal]
  - Cerebral infarction [Fatal]
